FAERS Safety Report 4377448-7 (Version None)
Quarter: 2004Q2

REPORT INFORMATION
  Report Type: 
  Country: None (occurrence: None)
  Receive Date: 20040615
  Receipt Date: 20040603
  Transmission Date: 20050107
  Serious: Yes (Hospitalization)
  Sender: FDA-Public Use
  Company Number: FR-BRISTOL-MYERS SQUIBB COMPANY-12604468

PATIENT
  Age: 1 Month
  Sex: Male

DRUGS (5)
  1. MUCOMYST [Suspect]
     Indication: RHINORRHOEA
     Route: 048
     Dates: start: 20040417, end: 20040426
  2. CELESTENE [Suspect]
     Indication: RHINORRHOEA
     Dosage: 50 DROPS FOR 3 DAYS; 30 DROPS FOR 8 DAYS
     Route: 048
     Dates: start: 20040417, end: 20040427
  3. VENTOLIN [Concomitant]
  4. ALBUTEROL SULFATE [Concomitant]
  5. BECOTIDE [Concomitant]

REACTIONS (4)
  - BRONCHITIS [None]
  - LIVEDO RETICULARIS [None]
  - NORMOCHROMIC NORMOCYTIC ANAEMIA [None]
  - WEIGHT DECREASED [None]
